FAERS Safety Report 4279233-3 (Version None)
Quarter: 2004Q1

REPORT INFORMATION
  Report Type: 
  Country: None (occurrence: None)
  Receive Date: 20040126
  Receipt Date: 20040126
  Transmission Date: 20041129
  Serious: No
  Sender: FDA-Public Use
  Company Number: None

PATIENT
  Age: 89 Year
  Sex: Female

DRUGS (1)
  1. DIGITEK  0.125  BERTEK [Suspect]
     Indication: CARDIAC FAILURE CONGESTIVE
     Dosage: 1   DAILY
     Dates: start: 20040112, end: 20040113

REACTIONS (4)
  - BLOOD PRESSURE INCREASED [None]
  - HEART RATE DECREASED [None]
  - PHARMACEUTICAL PRODUCT COMPLAINT [None]
  - VISION BLURRED [None]
